FAERS Safety Report 6896930-1 (Version None)
Quarter: 2010Q3

REPORT INFORMATION
  Report Type: 
  Country: None (occurrence: None)
  Receive Date: 20100802
  Receipt Date: 20070312
  Transmission Date: 20110219
  Serious: No
  Sender: FDA-Public Use
  Company Number: US-PFIZER INC-2007018355

PATIENT
  Sex: Female

DRUGS (2)
  1. LYRICA [Suspect]
     Indication: POST HERPETIC NEURALGIA
     Route: 048
     Dates: start: 20070226
  2. TYLENOL [Suspect]
     Indication: PAIN
     Dates: start: 20070226

REACTIONS (2)
  - DRUG EFFECT DECREASED [None]
  - MALAISE [None]
